FAERS Safety Report 24136208 (Version 1)
Quarter: 2024Q3

REPORT INFORMATION
  Report Type: Spontaneous
  Country: US (occurrence: US)
  Receive Date: 20240725
  Receipt Date: 20240725
  Transmission Date: 20241017
  Serious: No
  Sender: PFIZER
  Company Number: US-PFIZER INC-202400222138

PATIENT
  Age: 51 Year
  Sex: Female

DRUGS (6)
  1. IBRANCE [Suspect]
     Active Substance: PALBOCICLIB
     Indication: Breast cancer
     Dosage: TAKE 1 CAPSULE (125 MG) DAILY
     Route: 048
     Dates: start: 20240708
  2. XGEVA [Concomitant]
     Active Substance: DENOSUMAB
     Dosage: UNK
  3. CALCIUM [Concomitant]
     Active Substance: CALCIUM
     Dosage: UNK
  4. FASLODEX [Concomitant]
     Active Substance: FULVESTRANT
     Dosage: UNK
  5. VITAMIN B12 [Concomitant]
     Active Substance: CYANOCOBALAMIN
     Dosage: UNK
  6. ZYRTEC [Concomitant]
     Active Substance: CETIRIZINE HYDROCHLORIDE
     Dosage: UNK

REACTIONS (2)
  - Fatigue [Not Recovered/Not Resolved]
  - Product prescribing issue [Unknown]
